FAERS Safety Report 7792070-8 (Version None)
Quarter: 2011Q3

REPORT INFORMATION
  Report Type: 
  Country: None (occurrence: None)
  Receive Date: 20110930
  Receipt Date: 20110930
  Transmission Date: 20111222
  Serious: No
  Sender: FDA-Public Use
  Company Number: None

PATIENT
  Sex: Male
  Weight: 81.6475 kg

DRUGS (6)
  1. CYMBALTA [Suspect]
     Indication: LUMBAR SPINAL STENOSIS
     Dosage: 30 MG 1 TIME A DAY
     Dates: start: 20110914
  2. CYMBALTA [Suspect]
     Indication: HYPOAESTHESIA
     Dosage: 30 MG 1 TIME A DAY
     Dates: start: 20110914
  3. CYMBALTA [Suspect]
     Indication: LUMBAR SPINAL STENOSIS
     Dosage: 30 MG 1 TIME A DAY
     Dates: start: 20110915
  4. CYMBALTA [Suspect]
     Indication: HYPOAESTHESIA
     Dosage: 30 MG 1 TIME A DAY
     Dates: start: 20110915
  5. CYMBALTA [Suspect]
     Indication: LUMBAR SPINAL STENOSIS
     Dosage: 30 MG 1 TIME A DAY
     Dates: start: 20110916
  6. CYMBALTA [Suspect]
     Indication: HYPOAESTHESIA
     Dosage: 30 MG 1 TIME A DAY
     Dates: start: 20110916

REACTIONS (6)
  - NAUSEA [None]
  - INSOMNIA [None]
  - DIARRHOEA [None]
  - CHILLS [None]
  - TINNITUS [None]
  - DECREASED APPETITE [None]
